FAERS Safety Report 23616272 (Version 1)
Quarter: 2024Q1

REPORT INFORMATION
  Report Type: Spontaneous
  Country: US (occurrence: US)
  Receive Date: 20240311
  Receipt Date: 20240311
  Transmission Date: 20240410
  Serious: No
  Sender: FDA-Public Use
  Company Number: US-BoehringerIngelheim-2024-BI-013671

PATIENT
  Age: 12 Year
  Sex: Female

DRUGS (1)
  1. CYLTEZO [Suspect]
     Active Substance: ADALIMUMAB-ADBM
     Indication: Product used for unknown indication
     Dates: start: 20240307

REACTIONS (2)
  - Skin wound [Unknown]
  - Injection site haemorrhage [Not Recovered/Not Resolved]
